FAERS Safety Report 6781821-7 (Version None)
Quarter: 2010Q2

REPORT INFORMATION
  Report Type: 
  Country: None (occurrence: None)
  Receive Date: 20100621
  Receipt Date: 20100611
  Transmission Date: 20101027
  Serious: Yes (Other)
  Sender: FDA-Public Use
  Company Number: CA-AMGEN-KDL286273

PATIENT
  Sex: Male
  Weight: 111.7 kg

DRUGS (2)
  1. ENBREL [Suspect]
     Indication: PSORIASIS
     Route: 058
     Dates: start: 20080501, end: 20100506
  2. UNSPECIFIED TOPICAL PRODUCT [Concomitant]
     Route: 061

REACTIONS (5)
  - INJECTION SITE ERYTHEMA [None]
  - INJECTION SITE REACTION [None]
  - INJECTION SITE SWELLING [None]
  - PSORIASIS [None]
  - THERAPEUTIC RESPONSE DECREASED [None]
